FAERS Safety Report 8264168-1 (Version None)
Quarter: 2012Q2

REPORT INFORMATION
  Report Type: 
  Country: None (occurrence: None)
  Receive Date: 20120406
  Receipt Date: 20120322
  Transmission Date: 20120825
  Serious: Yes (Hospitalization, Other)
  Sender: FDA-Public Use
  Company Number: TR-RANBAXY-2012RR-55117

PATIENT
  Age: 19 Year
  Sex: Female

DRUGS (2)
  1. METFORMIN HCL [Suspect]
     Indication: SUICIDE ATTEMPT
     Dosage: 25 DF OF 500 MG TABLETS (12.5 G OR 250 MG/KG)
     Route: 048
  2. BICARBONATE [Concomitant]
     Indication: LACTIC ACIDOSIS
     Route: 065

REACTIONS (3)
  - INTENTIONAL OVERDOSE [None]
  - RENAL FAILURE ACUTE [None]
  - LACTIC ACIDOSIS [None]
